FAERS Safety Report 23550337 (Version 1)
Quarter: 2024Q1

REPORT INFORMATION
  Report Type: Report from Study
  Country: US (occurrence: US)
  Receive Date: 20240221
  Receipt Date: 20240221
  Transmission Date: 20240409
  Serious: Yes (Hospitalization)
  Sender: FDA-Public Use
  Company Number: US-TAKEDA-2024TUS001871

PATIENT
  Sex: Male

DRUGS (2)
  1. MARIBAVIR [Suspect]
     Active Substance: MARIBAVIR
     Indication: Cytomegalovirus infection
     Dosage: 2 DOSAGE FORM, BID
     Route: 048
  2. MARIBAVIR [Suspect]
     Active Substance: MARIBAVIR
     Dosage: 400 MILLIGRAM, BID
     Route: 048

REACTIONS (2)
  - Hospitalisation [Unknown]
  - Pyrexia [Unknown]
